FAERS Safety Report 16335238 (Version 1)
Quarter: 2019Q2

REPORT INFORMATION
  Report Type: Spontaneous
  Country: US (occurrence: US)
  Receive Date: 20190521
  Receipt Date: 20190521
  Transmission Date: 20190711
  Serious: No
  Sender: FDA-Public Use
  Company Number: US-TEVA-2019-US-1048623

PATIENT
  Age: 15 Year
  Sex: Female

DRUGS (1)
  1. CLARAVIS [Suspect]
     Active Substance: ISOTRETINOIN
     Indication: ACNE
     Route: 065
     Dates: start: 201901

REACTIONS (5)
  - Acne [Recovering/Resolving]
  - Drug ineffective [Unknown]
  - Headache [Not Recovered/Not Resolved]
  - White blood cell count decreased [Unknown]
  - Eye pain [Not Recovered/Not Resolved]
